FAERS Safety Report 12908082 (Version 1)
Quarter: 2016Q4

REPORT INFORMATION
  Report Type: Spontaneous
  Country: US (occurrence: US)
  Receive Date: 20161103
  Receipt Date: 20161103
  Transmission Date: 20170207
  Serious: No
  Sender: FDA-Public Use
  Company Number: US-PERRIGO-16US001867

PATIENT
  Age: 47 Year
  Sex: Female
  Weight: 49.89 kg

DRUGS (2)
  1. MESALAZINE [Suspect]
     Active Substance: MESALAMINE
     Indication: COLITIS ULCERATIVE
     Dosage: 4 G, SINGLE
     Route: 054
     Dates: start: 20160215, end: 20160215
  2. METHIMAZOLE. [Concomitant]
     Active Substance: METHIMAZOLE
     Indication: HYPERTHYROIDISM
     Dosage: 10 MG, UNKNOWN
     Route: 065

REACTIONS (3)
  - Abdominal pain [Recovered/Resolved]
  - Rectal haemorrhage [Recovering/Resolving]
  - Flatulence [Recovered/Resolved]

NARRATIVE: CASE EVENT DATE: 20160216
